FAERS Safety Report 7296172-4 (Version None)
Quarter: 2011Q1

REPORT INFORMATION
  Report Type: 
  Country: None (occurrence: None)
  Receive Date: 20110204
  Receipt Date: 20110120
  Transmission Date: 20110831
  Serious: Yes (Disabling)
  Sender: FDA-Public Use
  Company Number: AUR-APL-2011-00291

PATIENT
  Age: 20 Year
  Sex: Female
  Weight: 57.2 kg

DRUGS (6)
  1. PROPRANOLOL [Concomitant]
  2. NAPROXEN [Concomitant]
  3. MIRTAZAPINE [Suspect]
     Dates: start: 20110114
  4. CITALOPRAM [Concomitant]
  5. SERTRALINE [Concomitant]
  6. CODEINE SULFATE [Concomitant]

REACTIONS (2)
  - SUICIDAL IDEATION [None]
  - SELF INJURIOUS BEHAVIOUR [None]
